FAERS Safety Report 11126641 (Version 1)
Quarter: 2015Q2

REPORT INFORMATION
  Report Type: Spontaneous
  Country: TR (occurrence: TR)
  Receive Date: 20150520
  Receipt Date: 20150520
  Transmission Date: 20150821
  Serious: Yes (Hospitalization)
  Sender: FDA-Public Use
  Company Number: TR-JNJFOC-20150512505

PATIENT
  Age: 65 Year
  Sex: Female

DRUGS (4)
  1. FENTANYL. [Suspect]
     Active Substance: FENTANYL
     Indication: PAIN
     Dosage: 25-50 UG
     Route: 062
  2. CISPLATIN. [Concomitant]
     Active Substance: CISPLATIN
     Indication: CHEMOTHERAPY
     Route: 065
  3. TRAMADOL HYDROCHLORIDE. [Suspect]
     Active Substance: TRAMADOL HYDROCHLORIDE
     Indication: PAIN
     Route: 065
  4. DOCETAXEL. [Concomitant]
     Active Substance: DOCETAXEL
     Indication: CHEMOTHERAPY
     Route: 065

REACTIONS (1)
  - Hypopituitarism [Recovered/Resolved]
